FAERS Safety Report 9181649 (Version 1)
Quarter: 2013Q1

REPORT INFORMATION
  Report Type: Spontaneous
  Country: US (occurrence: None)
  Receive Date: 20130321
  Receipt Date: 20130321
  Transmission Date: 20140127
  Serious: Yes (Life-Threatening)
  Sender: FDA-Public Use
  Company Number: None

PATIENT
  Age: 54 Year
  Sex: Male
  Weight: 74 kg

DRUGS (1)
  1. AZITHROMYCIN [Suspect]

REACTIONS (1)
  - Electrocardiogram QT prolonged [None]
